FAERS Safety Report 4715569-7 (Version None)
Quarter: 2005Q3

REPORT INFORMATION
  Report Type: 
  Country: None (occurrence: None)
  Receive Date: 20050713
  Receipt Date: 20050627
  Transmission Date: 20060218
  Serious: Yes (Other)
  Sender: FDA-Public Use
  Company Number: DSA_26646_2005

PATIENT
  Age: 19 Year
  Sex: Female
  Weight: 30 kg

DRUGS (11)
  1. RENIVACE [Suspect]
     Indication: CARDIAC FAILURE
     Dosage: 2.5 MG BID PO
     Route: 048
     Dates: start: 20050611, end: 20050611
  2. RENIVACE [Suspect]
     Indication: CARDIAC FAILURE
     Dosage: 1.5 MG BID PO
     Route: 048
     Dates: start: 20050604, end: 20050610
  3. RENIVACE [Suspect]
     Indication: CARDIAC FAILURE
     Dosage: 0.75 MB BID PO
     Route: 048
     Dates: start: 20050526, end: 20050603
  4. MILRILA [Concomitant]
  5. LASIX [Concomitant]
  6. ALDACTONE [Concomitant]
  7. HALFDIGOXIN [Concomitant]
  8. NEUQUINONE [Concomitant]
  9. ZYLORIC ^FAES^ [Concomitant]
  10. COUMADIN [Concomitant]
  11. ASPIRIN [Concomitant]

REACTIONS (19)
  - ANURIA [None]
  - ASPARTATE AMINOTRANSFERASE INCREASED [None]
  - BETA-N-ACETYL-D-GLUCOSAMINIDASE INCREASED [None]
  - BLOOD ALKALINE PHOSPHATASE INCREASED [None]
  - BLOOD BILIRUBIN INCREASED [None]
  - BLOOD CHLORIDE DECREASED [None]
  - BLOOD LACTATE DEHYDROGENASE INCREASED [None]
  - BLOOD POTASSIUM INCREASED [None]
  - BLOOD PRESSURE SYSTOLIC DECREASED [None]
  - BLOOD SODIUM DECREASED [None]
  - FIBRIN DEGRADATION PRODUCTS INCREASED [None]
  - GAMMA-GLUTAMYLTRANSFERASE INCREASED [None]
  - GLUCOSE URINE PRESENT [None]
  - HAEMATOCRIT DECREASED [None]
  - HAEMODIALYSIS [None]
  - HYPOTENSION [None]
  - PLATELET COUNT INCREASED [None]
  - RED BLOOD CELL COUNT DECREASED [None]
  - RENAL FAILURE ACUTE [None]
